FAERS Safety Report 8799275 (Version 4)
Quarter: 2014Q1

REPORT INFORMATION
  Report Type: Spontaneous
  Country: US (occurrence: US)
  Receive Date: 20120920
  Receipt Date: 20140211
  Transmission Date: 20141002
  Serious: Yes (Hospitalization, Other)
  Sender: FDA-Public Use
  Company Number: US-009507513-1209USA004687

PATIENT
  Sex: Female

DRUGS (4)
  1. FOSAMAX [Suspect]
     Indication: OSTEOPENIA
     Dosage: 70.000000 MG, QW
     Route: 048
     Dates: end: 200705
  2. FOSAMAX PLUS D [Suspect]
     Indication: OSTEOPENIA
     Dosage: 70 MG, QW
     Route: 048
     Dates: start: 200705, end: 200708
  3. FOSAMAX PLUS D [Suspect]
     Dosage: 70 MG, QW
     Route: 048
     Dates: start: 200712, end: 200805
  4. ALENDRONATE SODIUM [Suspect]
     Indication: OSTEOPENIA
     Dosage: 70 MG, QW
     Route: 048
     Dates: start: 200806, end: 201009

REACTIONS (30)
  - Femur fracture [Recovering/Resolving]
  - Femur fracture [Unknown]
  - Intramedullary rod insertion [Unknown]
  - Anaemia postoperative [Unknown]
  - Pneumonia [Unknown]
  - Breast cancer [Recovering/Resolving]
  - Mastectomy [Unknown]
  - Breast reconstruction [Unknown]
  - Dental implantation [Unknown]
  - Dental implantation [Unknown]
  - Dental implantation [Unknown]
  - Dental implantation [Unknown]
  - Tooth extraction [Unknown]
  - Tooth extraction [Unknown]
  - Tooth extraction [Unknown]
  - Tooth extraction [Unknown]
  - Vascular dementia [Unknown]
  - Depression [Unknown]
  - Tuberculosis [Unknown]
  - Osteoporosis [Unknown]
  - Abnormal dreams [Unknown]
  - Hysterectomy [Unknown]
  - Pneumonia [Unknown]
  - Cataract [Unknown]
  - Glucose tolerance impaired [Unknown]
  - Leukocytosis [Unknown]
  - Supraventricular extrasystoles [Unknown]
  - Electrocardiogram ST-T change [Unknown]
  - Vitamin D deficiency [Unknown]
  - Nausea [Unknown]
